FAERS Safety Report 9509759 (Version 2)
Quarter: 2013Q4

REPORT INFORMATION
  Report Type: Report from Study
  Country: US (occurrence: US)
  Receive Date: 20130909
  Receipt Date: 20131004
  Transmission Date: 20140711
  Serious: Yes (Other)
  Sender: FDA-Public Use
  Company Number: US-BAYER-2013-108121

PATIENT
  Age: 71 Year
  Sex: Female
  Weight: 77.55 kg

DRUGS (22)
  1. BETASERON [Suspect]
     Indication: MULTIPLE SCLEROSIS
     Dosage: UNK UNK, QOD
     Dates: start: 20040413, end: 20040813
  2. BETASERON [Suspect]
     Indication: MULTIPLE SCLEROSIS
     Dosage: UNK
     Dates: start: 20040917, end: 20130607
  3. BETASERON [Suspect]
     Indication: MULTIPLE SCLEROSIS
     Dosage: 8 MIU, EVERY OTHER DAY
     Route: 058
     Dates: start: 20130801
  4. BETASERON [Suspect]
     Indication: MULTIPLE SCLEROSIS
     Dosage: 0.3 MG, QOD
     Route: 058
  5. CRESTOR [Concomitant]
     Dosage: 40 MG, QD
     Route: 048
  6. ZETIA [Concomitant]
     Dosage: 10 MG, 1/2 - 1 TABLET QD
     Route: 048
  7. NORVASC [Concomitant]
     Dosage: 5 MG, QD
     Route: 048
  8. OMEGA-3 FATTY ACIDS [Concomitant]
     Dosage: 2100 MG 2 CAPSULES QD
     Route: 048
  9. COZAAR [Concomitant]
     Dosage: 100 MG, 1/2 - 1 TAB HS
     Route: 048
  10. OMEPRAZOLE [Concomitant]
     Dosage: 20 MG, BID
     Route: 048
  11. TRAZODONE HCL [Concomitant]
     Dosage: 100 MG, 2 TABLETS HS
  12. CYANOCOBALAMIN [Concomitant]
     Dosage: 1000 MCG, 1 ML, Q1MON
     Route: 030
  13. LORTAB 10/500 [Concomitant]
     Indication: PAIN
     Dosage: 10/500 MG, 1/2 - 1 TABLET BID PRN PAIN
     Route: 048
  14. FOLIC ACID [Concomitant]
     Dosage: 800 ?G, QD
     Route: 048
  15. VITAMIN C [ASCORBIC ACID] [Concomitant]
     Dosage: 500 MG/5 ML AS DIRECTED
     Route: 048
  16. CLOMIPRAMINE [Concomitant]
     Dosage: 50 MG, 1-2 CAPSULES HS
     Route: 048
  17. ESTRACE VAGINAL [Concomitant]
     Dosage: 0.1 MG/GM OW
     Route: 067
  18. ACTOS [Concomitant]
     Indication: DIABETES MELLITUS
     Dosage: 30 MG, QD FOR SUGAR
     Route: 048
  19. FLAXSEED OIL [Concomitant]
     Dosage: 1000 MG 2 CAPSULES QD
     Route: 048
  20. CALCIUM +VIT D [Concomitant]
     Dosage: 600-200 MG-UNIT, 1 TABLET QD
     Route: 048
  21. NADOLOL [Concomitant]
     Dosage: 40 MG, 1/2 - 1 TABLET BID
     Route: 048
  22. DIAZEPAM [Concomitant]
     Dosage: 5 MG, 1 TAB PRN
     Route: 048

REACTIONS (2)
  - Renal impairment [Recovering/Resolving]
  - Colonoscopy [None]
